FAERS Safety Report 8171434-7 (Version None)
Quarter: 2012Q1

REPORT INFORMATION
  Report Type: 
  Country: None (occurrence: None)
  Receive Date: 20120228
  Receipt Date: 20120221
  Transmission Date: 20120608
  Serious: Yes (Other)
  Sender: FDA-Public Use
  Company Number: US-PFIZER INC-2008155043

PATIENT
  Sex: Female
  Weight: 74.83 kg

DRUGS (9)
  1. CYMBALTA [Concomitant]
     Indication: DEPRESSION
     Dosage: UNK
  2. LYRICA [Suspect]
     Indication: COMPLEX REGIONAL PAIN SYNDROME
     Dosage: 225 MG, 1X/DAY
     Dates: start: 20060101, end: 20081101
  3. CYMBALTA [Concomitant]
     Indication: SUICIDAL IDEATION
  4. LYRICA [Suspect]
     Indication: FIBROMYALGIA
  5. OMEPRAZOLE [Suspect]
     Indication: GASTROOESOPHAGEAL REFLUX DISEASE
     Dosage: 20 MG, DAILY
     Route: 048
  6. DURAGESIC-100 [Concomitant]
     Dosage: UNK
  7. XANAX [Concomitant]
     Dosage: UNK
  8. LYRICA [Suspect]
     Indication: NEURALGIA
     Dosage: 225 MG, 2X/DAY
     Route: 048
  9. PERCOCET [Concomitant]
     Indication: PAIN
     Dosage: UNK

REACTIONS (8)
  - FEELING ABNORMAL [None]
  - WEIGHT INCREASED [None]
  - MYOCARDIAL INFARCTION [None]
  - WITHDRAWAL SYNDROME [None]
  - HAND FRACTURE [None]
  - BLOOD PRESSURE INCREASED [None]
  - TYPE 2 DIABETES MELLITUS [None]
  - MALAISE [None]
